FAERS Safety Report 5487996-4 (Version None)
Quarter: 2007Q4

REPORT INFORMATION
  Report Type: 
  Country: None (occurrence: None)
  Receive Date: 20071017
  Receipt Date: 20071011
  Transmission Date: 20080405
  Serious: Yes (Congenital Anomaly)
  Sender: FDA-Public Use
  Company Number: US-RB-008269-07

PATIENT
  Sex: Male

DRUGS (3)
  1. SUBUTEX [Suspect]
  2. SUBUTEX [Suspect]
     Dosage: MOTHER VARIED DOSE DURING PREGNANCY FROM 2-8 MG PER DAY
     Route: 064
     Dates: start: 20070301, end: 20070906
  3. SUBOXONE [Suspect]
     Route: 064
     Dates: start: 20070101, end: 20070301

REACTIONS (1)
  - CONGENITAL ANOMALY [None]
